FAERS Safety Report 21080646 (Version 1)
Quarter: 2022Q3

REPORT INFORMATION
  Report Type: Spontaneous
  Country: US (occurrence: US)
  Receive Date: 20220714
  Receipt Date: 20220714
  Transmission Date: 20221027
  Serious: No
  Sender: FDA-Public Use
  Company Number: US-RECKITT BENCKISER HEALTHCARE INT LIMITED-RB-082160-2022

PATIENT
  Age: 79 Year
  Sex: Female

DRUGS (2)
  1. MUCINEX DM [Suspect]
     Active Substance: DEXTROMETHORPHAN HYDROBROMIDE\GUAIFENESIN
     Indication: Bronchitis
     Dosage: 600 MILLIGRAM
     Route: 048
  2. MUCINEX DM [Suspect]
     Active Substance: DEXTROMETHORPHAN HYDROBROMIDE\GUAIFENESIN
     Dosage: 600 MILLIGRAM, QD
     Route: 048
     Dates: start: 20220124

REACTIONS (2)
  - Drug effective for unapproved indication [Unknown]
  - Incorrect product administration duration [Unknown]
